FAERS Safety Report 13219521 (Version 1)
Quarter: 2017Q1

REPORT INFORMATION
  Report Type: Spontaneous
  Country: US (occurrence: US)
  Receive Date: 20170210
  Receipt Date: 20170210
  Transmission Date: 20170428
  Serious: Yes (Other)
  Sender: FDA-Public Use
  Company Number: US-ENDO PHARMACEUTICALS INC-2017-000534

PATIENT
  Age: 53 Year
  Sex: Female

DRUGS (4)
  1. PROPRANOLOL HCL TABLETS 10MG [Suspect]
     Active Substance: PROPRANOLOL HYDROCHLORIDE
     Indication: MIGRAINE
     Dosage: 20 MG, UNKNOWN
     Route: 048
  2. DIVALPROEX [Suspect]
     Active Substance: DIVALPROEX SODIUM
     Indication: MIGRAINE
     Dosage: UNK, UNKNOWN
     Route: 065
     Dates: start: 20170118
  3. PROPRANOLOL HCL TABLETS 10MG [Suspect]
     Active Substance: PROPRANOLOL HYDROCHLORIDE
     Indication: TREMOR
     Dosage: 10 MG, TID
     Route: 048
     Dates: start: 2016, end: 20170118
  4. DIVALPROEX [Suspect]
     Active Substance: DIVALPROEX SODIUM
     Indication: TREMOR

REACTIONS (6)
  - Vision blurred [Unknown]
  - Balance disorder [Unknown]
  - Intentional product use issue [Unknown]
  - Fatigue [Unknown]
  - Impaired work ability [Unknown]
  - Headache [Unknown]

NARRATIVE: CASE EVENT DATE: 20170126
